FAERS Safety Report 10514438 (Version 1)
Quarter: 2014Q4

REPORT INFORMATION
  Report Type: Spontaneous
  Country: CA (occurrence: CA)
  Receive Date: 20141013
  Receipt Date: 20141013
  Transmission Date: 20150528
  Serious: Yes (Other)
  Sender: FDA-Public Use
  Company Number: CA-PFIZER INC-2014276231

PATIENT
  Age: 51 Year
  Sex: Female

DRUGS (1)
  1. ETHINYLESTRADIOL/LEVONORGESTREL [Suspect]
     Active Substance: ETHINYL ESTRADIOL\LEVONORGESTREL
     Dosage: UNK
     Dates: start: 2004

REACTIONS (1)
  - Haemangioma of liver [Not Recovered/Not Resolved]

NARRATIVE: CASE EVENT DATE: 2014
